FAERS Safety Report 25825503 (Version 1)
Quarter: 2025Q3

REPORT INFORMATION
  Report Type: Spontaneous
  Country: EU (occurrence: EU)
  Receive Date: 20250919
  Receipt Date: 20250919
  Transmission Date: 20251020
  Serious: Yes (Other)
  Sender: MYLAN
  Company Number: None

PATIENT
  Age: 67 Year
  Sex: Female

DRUGS (4)
  1. VALSARTAN [Suspect]
     Active Substance: VALSARTAN
     Indication: Hypertension
  2. VALSARTAN [Suspect]
     Active Substance: VALSARTAN
     Route: 048
  3. VALSARTAN [Suspect]
     Active Substance: VALSARTAN
     Route: 048
  4. VALSARTAN [Suspect]
     Active Substance: VALSARTAN

REACTIONS (2)
  - Condition aggravated [Recovered/Resolved]
  - Paralysis [Recovered/Resolved]

NARRATIVE: CASE EVENT DATE: 20220101
